FAERS Safety Report 9224711 (Version 2)
Quarter: 2013Q2

REPORT INFORMATION
  Report Type: Spontaneous
  Country: US (occurrence: US)
  Receive Date: 20130411
  Receipt Date: 20130426
  Transmission Date: 20140414
  Serious: Yes (Hospitalization)
  Sender: FDA-Public Use
  Company Number: US-BRISTOL-MYERS SQUIBB COMPANY-18749507

PATIENT
  Age: 46 Year
  Sex: Female

DRUGS (15)
  1. YERVOY [Suspect]
     Dosage: LAST DOSE:22AUG12
  2. ADVAIR [Concomitant]
  3. ALBUTEROL [Concomitant]
  4. CELEXA [Concomitant]
  5. NEURONTIN [Concomitant]
  6. LASIX [Concomitant]
  7. LEVOTHYROXINE [Concomitant]
  8. METHADONE [Concomitant]
  9. OXYCODONE [Concomitant]
  10. POTASSIUM CHLORIDE [Concomitant]
  11. PRO-AIR [Concomitant]
  12. ZANTAC [Concomitant]
  13. SINGULAIR [Concomitant]
  14. TRAZODONE HCL [Concomitant]
  15. VITAMIN D [Concomitant]

REACTIONS (2)
  - Pericardial effusion [Unknown]
  - Pleural effusion [Unknown]
